FAERS Safety Report 10198578 (Version 1)
Quarter: 2014Q2

REPORT INFORMATION
  Report Type: Spontaneous
  Country: US (occurrence: US)
  Receive Date: 20140527
  Receipt Date: 20140527
  Transmission Date: 20141212
  Serious: No
  Sender: FDA-Public Use
  Company Number: US-NOVEN-13US007935

PATIENT
  Age: 10 Year
  Sex: Male
  Weight: 22.68 kg

DRUGS (3)
  1. DAYTRANA [Suspect]
     Indication: ATTENTION DEFICIT/HYPERACTIVITY DISORDER
     Dosage: 10 MG, UNKNOWN
     Route: 062
     Dates: start: 201309, end: 20131005
  2. DAYTRANA [Suspect]
     Dosage: 15 MG, UNKNOWN
     Route: 062
     Dates: start: 20131005
  3. CLONIDINE [Concomitant]
     Indication: SLEEP DISORDER
     Dosage: 0.1 MG, UNKNOWN
     Route: 048

REACTIONS (1)
  - Abnormal behaviour [Not Recovered/Not Resolved]
